FAERS Safety Report 6624047-X (Version None)
Quarter: 2010Q1

REPORT INFORMATION
  Report Type: 
  Country: None (occurrence: None)
  Receive Date: 20100310
  Receipt Date: 20100226
  Transmission Date: 20100710
  Serious: Yes (Hospitalization, Other)
  Sender: FDA-Public Use
  Company Number: US-ELI_LILLY_AND_COMPANY-US201002000853

PATIENT
  Age: 35 Year
  Sex: Female

DRUGS (2)
  1. CYMBALTA [Suspect]
     Dosage: 90 MG, UNKNOWN
     Route: 065
  2. RELPAX [Interacting]
     Indication: MIGRAINE

REACTIONS (3)
  - AFFECTIVE DISORDER [None]
  - DRUG INTERACTION [None]
  - SEROTONIN SYNDROME [None]
